FAERS Safety Report 5514413-8 (Version None)
Quarter: 2007Q4

REPORT INFORMATION
  Report Type: 
  Country: None (occurrence: None)
  Receive Date: 20071113
  Receipt Date: 20070511
  Transmission Date: 20080405
  Serious: No
  Sender: FDA-Public Use
  Company Number: A0651049A

PATIENT
  Age: 79 Year
  Sex: Female

DRUGS (6)
  1. COREG [Suspect]
     Indication: ATRIAL FIBRILLATION
     Dosage: 6.25MG TWICE PER DAY
     Route: 048
     Dates: start: 20030101
  2. WARFARIN SODIUM [Concomitant]
  3. DIGOXIN [Concomitant]
  4. PRIMIDONE [Concomitant]
  5. DAILY VITAMIN [Concomitant]
  6. EVISTA [Concomitant]

REACTIONS (5)
  - BALANCE DISORDER [None]
  - CALCINOSIS [None]
  - DIZZINESS [None]
  - FALL [None]
  - VERTIGO [None]
